FAERS Safety Report 18596339 (Version 2)
Quarter: 2021Q2

REPORT INFORMATION
  Report Type: Report from Study
  Country: US (occurrence: US)
  Receive Date: 20201209
  Receipt Date: 20210503
  Transmission Date: 20210717
  Serious: Yes (Hospitalization)
  Sender: FDA-Public Use
  Company Number: US-BRISTOL-MYERS SQUIBB COMPANY-BMS-2020-104252

PATIENT
  Age: 56 Year
  Sex: Male
  Weight: 71.7 kg

DRUGS (5)
  1. HYDROCORTISONE. [Concomitant]
     Active Substance: HYDROCORTISONE
     Dosage: 50 MILLIGRAM, BID
     Route: 042
     Dates: start: 20201204
  2. RAMUCIRUMAB [Suspect]
     Active Substance: RAMUCIRUMAB
     Indication: OESOPHAGEAL CARCINOMA
     Dosage: 8 MILLIGRAM/KILOGRAM, Q2WK
     Route: 042
     Dates: start: 20200127
  3. HYDROCORTISONE. [Concomitant]
     Active Substance: HYDROCORTISONE
     Indication: CANCER PAIN
     Dosage: 50 MILLIGRAM
     Route: 042
     Dates: start: 20201203
  4. NIVOLUMAB [Suspect]
     Active Substance: NIVOLUMAB
     Indication: OESOPHAGEAL CARCINOMA
     Dosage: UNK UNK, Q4WK
     Route: 042
     Dates: start: 20200127
  5. RUCAPARIB [Suspect]
     Active Substance: RUCAPARIB
     Indication: OESOPHAGEAL CARCINOMA
     Route: 065

REACTIONS (1)
  - Abdominal pain [Recovered/Resolved]

NARRATIVE: CASE EVENT DATE: 20201201
